FAERS Safety Report 21311138 (Version 1)
Quarter: 2022Q3

REPORT INFORMATION
  Report Type: Spontaneous
  Country: US (occurrence: None)
  Receive Date: 20220909
  Receipt Date: 20220909
  Transmission Date: 20221027
  Serious: No
  Sender: FDA-Public Use
  Company Number: US-ARIS GLOBAL-202201-0053

PATIENT
  Sex: Male

DRUGS (20)
  1. OXERVATE [Suspect]
     Active Substance: CENEGERMIN-BKBJ
     Indication: Neurotrophic keratopathy
     Route: 047
     Dates: start: 20191106, end: 20200101
  2. OXERVATE [Suspect]
     Active Substance: CENEGERMIN-BKBJ
     Route: 047
     Dates: start: 20220106
  3. LEVOTHYROXINE [Concomitant]
     Active Substance: LEVOTHYROXINE
  4. DIGOXIN [Concomitant]
     Active Substance: DIGOXIN
  5. METOPROLOL SUCCINATE [Concomitant]
     Active Substance: METOPROLOL SUCCINATE
  6. FAMCICLOVIR [Concomitant]
     Active Substance: FAMCICLOVIR
  7. ARTIFICIAL TEARS [Concomitant]
     Active Substance: GLYCERIN\HYPROMELLOSES\POLYETHYLENE GLYCOL 400
     Dosage: 0.1%-0.3%
  8. ZIRGAN [Concomitant]
     Active Substance: GANCICLOVIR
     Dosage: (GM)
  9. COMBIGAN [Concomitant]
     Active Substance: BRIMONIDINE TARTRATE\TIMOLOL MALEATE
     Dosage: 0.2%-0.5%
  10. LOTEMAX [Concomitant]
     Active Substance: LOTEPREDNOL ETABONATE
  11. ERYTHROMYCIN [Concomitant]
     Active Substance: ERYTHROMYCIN
  12. ADVAIR HFA [Concomitant]
     Active Substance: FLUTICASONE PROPIONATE\SALMETEROL XINAFOATE
     Dosage: 115-21 MCG HYDROFLUOROALKANE AEROSOL ADAPTER
  13. FUROSEMIDE [Concomitant]
     Active Substance: FUROSEMIDE
  14. LOVASTATIN [Concomitant]
     Active Substance: LOVASTATIN
  15. TRAMADOL HCL [Concomitant]
     Active Substance: TRAMADOL HYDROCHLORIDE
  16. IBUPROFEN [Concomitant]
     Active Substance: IBUPROFEN
  17. COLCRYS [Concomitant]
     Active Substance: COLCHICINE
  18. AMLODIPINE BESYLATE [Concomitant]
     Active Substance: AMLODIPINE BESYLATE
  19. LISINOPRIL [Concomitant]
     Active Substance: LISINOPRIL
  20. WARFARIN SODIUM [Concomitant]
     Active Substance: WARFARIN SODIUM

REACTIONS (4)
  - Drug ineffective [Unknown]
  - Eye irritation [Unknown]
  - Product dose omission issue [Unknown]
  - Wrong technique in product usage process [Unknown]
